FAERS Safety Report 10932755 (Version 1)
Quarter: 2015Q1

REPORT INFORMATION
  Report Type: Spontaneous
  Country: US (occurrence: None)
  Receive Date: 20150319
  Receipt Date: 20150319
  Transmission Date: 20150721
  Serious: Yes (Life-Threatening, Hospitalization, Disabling)
  Sender: FDA-Public Use
  Company Number: None

PATIENT
  Age: 55 Year
  Sex: Male
  Weight: 145.15 kg

DRUGS (1)
  1. AMLOD/BENAZEPRIL 5-10MG (GENERIC FOR LOTREL 5-10 MG CAP [Suspect]
     Active Substance: AMLODIPINE BESYLATE\BENAZEPRIL HYDROCHLORIDE
     Route: 048
     Dates: start: 2000, end: 20150207

REACTIONS (4)
  - Hypoaesthesia oral [None]
  - Speech disorder [None]
  - Asthenia [None]
  - Dysphemia [None]

NARRATIVE: CASE EVENT DATE: 20150207
